FAERS Safety Report 13200740 (Version 4)
Quarter: 2017Q2

REPORT INFORMATION
  Report Type: Report from Study
  Country: US (occurrence: US)
  Receive Date: 20170209
  Receipt Date: 20170427
  Transmission Date: 20170830
  Serious: Yes (Hospitalization, Other)
  Sender: FDA-Public Use
  Company Number: US-ROCHE-1881256

PATIENT
  Age: 66 Year
  Sex: Male
  Weight: 120 kg

DRUGS (7)
  1. VINCRISTINE SULFATE. [Suspect]
     Active Substance: VINCRISTINE SULFATE
     Indication: DIFFUSE LARGE B-CELL LYMPHOMA
     Dosage: ON 03/JAN/2017 MOST RECENT DOSE
     Route: 042
     Dates: start: 20170103
  2. PREDNISONE. [Suspect]
     Active Substance: PREDNISONE
     Indication: DIFFUSE LARGE B-CELL LYMPHOMA
     Dosage: ON 07/JAN/2017 MOST RECENT DOSE
     Route: 048
     Dates: start: 20170103
  3. LEVAQUIN [Concomitant]
     Active Substance: LEVOFLOXACIN
  4. CYCLOPHOSPHAMIDE. [Suspect]
     Active Substance: CYCLOPHOSPHAMIDE
     Indication: DIFFUSE LARGE B-CELL LYMPHOMA
     Dosage: ON 03/JAN/2017 MOST RECENT DOSE
     Route: 042
     Dates: start: 20170103
  5. DOXORUBICIN HYDROCHLORIDE. [Suspect]
     Active Substance: DOXORUBICIN HYDROCHLORIDE
     Indication: DIFFUSE LARGE B-CELL LYMPHOMA
     Dosage: ON 03/JAN/2017 MOST RECENT DOSE
     Route: 042
     Dates: start: 20170103
  6. LENALIDOMIDE [Suspect]
     Active Substance: LENALIDOMIDE
     Indication: DIFFUSE LARGE B-CELL LYMPHOMA
     Dosage: ON 03/JAN/2017 STARTED C5D1 (CYCLE 5 DAY 1)
     Route: 048
     Dates: start: 20170103, end: 20170108
  7. OBINUTUZUMAB [Suspect]
     Active Substance: OBINUTUZUMAB
     Indication: DIFFUSE LARGE B-CELL LYMPHOMA
     Dosage: ON 03/JAN/2017 STARTED C5D1 (CYCLE 5 DAY 1)
     Route: 042
     Dates: start: 20170103

REACTIONS (11)
  - Syncope [Recovered/Resolved with Sequelae]
  - Syncope [Recovered/Resolved]
  - Depression [Recovered/Resolved with Sequelae]
  - Dizziness [Recovered/Resolved with Sequelae]
  - Febrile neutropenia [Recovered/Resolved]
  - Peripheral sensory neuropathy [Recovered/Resolved with Sequelae]
  - Clostridium difficile infection [Recovered/Resolved]
  - Myalgia [Recovered/Resolved with Sequelae]
  - Obesity [Recovered/Resolved with Sequelae]
  - Fatigue [Recovered/Resolved with Sequelae]
  - Hypotension [Recovered/Resolved]

NARRATIVE: CASE EVENT DATE: 20170108
